FAERS Safety Report 8285206-6 (Version None)
Quarter: 2012Q2

REPORT INFORMATION
  Report Type: 
  Country: None (occurrence: None)
  Receive Date: 20120413
  Receipt Date: 20120210
  Transmission Date: 20120825
  Serious: No
  Sender: FDA-Public Use
  Company Number: US-ASTRAZENECA-2012SE09097

PATIENT
  Age: 87 Year
  Sex: Female
  Weight: 47.6 kg

DRUGS (4)
  1. NEXIUM [Suspect]
     Indication: PROPHYLAXIS AGAINST GASTROINTESTINAL ULCER
     Route: 048
     Dates: start: 20120127, end: 20120206
  2. TYLENOL (CAPLET) [Concomitant]
     Indication: ARTHRITIS
  3. STEROID INJECTIONS [Concomitant]
  4. OVER THE COUNTER ANTACIDS [Concomitant]

REACTIONS (8)
  - DRUG PRESCRIBING ERROR [None]
  - EROSIVE OESOPHAGITIS [None]
  - VERTIGO [None]
  - HEADACHE [None]
  - VISUAL IMPAIRMENT [None]
  - VAGINAL HAEMORRHAGE [None]
  - ABDOMINAL PAIN UPPER [None]
  - DIZZINESS [None]
